FAERS Safety Report 24828683 (Version 1)
Quarter: 2025Q1

REPORT INFORMATION
  Report Type: Report from Study
  Country: CH (occurrence: CH)
  Receive Date: 20250110
  Receipt Date: 20250110
  Transmission Date: 20250408
  Serious: Yes (Other)
  Sender: JOHNSON AND JOHNSON
  Company Number: CH-JNJFOC-20241224533

PATIENT

DRUGS (2)
  1. STELARA [Suspect]
     Active Substance: USTEKINUMAB
     Indication: Inflammatory bowel disease
     Route: 058
  2. VEDOLIZUMAB [Suspect]
     Active Substance: VEDOLIZUMAB
     Indication: Inflammatory bowel disease

REACTIONS (9)
  - Non-Hodgkin^s lymphoma [Unknown]
  - Ophthalmic herpes zoster [Unknown]
  - Eczema [Unknown]
  - Lymphopenia [Unknown]
  - Nausea [Unknown]
  - Headache [Unknown]
  - Otitis media [Unknown]
  - Fungal infection [Unknown]
  - Parotid gland enlargement [Unknown]
